FAERS Safety Report 10386469 (Version 1)
Quarter: 2014Q3

REPORT INFORMATION
  Report Type: Spontaneous
  Country: FR (occurrence: FR)
  Receive Date: 20140815
  Receipt Date: 20140815
  Transmission Date: 20150326
  Serious: Yes (Hospitalization)
  Sender: FDA-Public Use
  Company Number: FR-AMGEN-FRASP2014060844

PATIENT
  Age: 45 Year
  Sex: Female

DRUGS (14)
  1. LOXEN                              /00639802/ [Concomitant]
     Active Substance: NICARDIPINE
     Dosage: 50 MG, UNK
  2. INEXIUM                            /01479302/ [Suspect]
     Active Substance: ESOMEPRAZOLE MAGNESIUM
     Indication: PRODUCT USED FOR UNKNOWN INDICATION
     Dosage: 40 MG,(1 DAY) UNK
     Route: 065
     Dates: start: 20140612, end: 20140630
  3. NEBIVOLOL SANDOZ [Concomitant]
     Dosage: 5 MG, UNK
  4. ORACILLINE                         /00001801/ [Concomitant]
     Active Substance: PENICILLIN V BENZATHINE
     Dosage: 1000000 IU, UNK
     Dates: start: 20140612
  5. CEFTRIAXONE. [Concomitant]
     Active Substance: CEFTRIAXONE
     Dosage: UNK
     Route: 042
     Dates: start: 20140613, end: 20140617
  6. LASILIX                            /00032601/ [Concomitant]
     Active Substance: FUROSEMIDE
     Dosage: 40 MG, (1 DAY)UNK
     Dates: start: 20140614, end: 20140630
  7. RENVELA [Concomitant]
     Active Substance: SEVELAMER CARBONATE
     Dosage: 2.4 G, UNK
  8. SPECIAFOLDINE [Concomitant]
     Active Substance: FOLIC ACID
     Dosage: 5 MG, UNK
  9. AMOXICILLIN                        /00249602/ [Concomitant]
  10. ARANESP [Suspect]
     Active Substance: DARBEPOETIN ALFA
     Indication: PRODUCT USED FOR UNKNOWN INDICATION
     Dosage: 30 MUG, UNK
     Route: 058
     Dates: start: 20140613, end: 20140617
  11. BACTRIM [Concomitant]
     Active Substance: SULFAMETHOXAZOLE\TRIMETHOPRIM
     Dosage: 400 MG, (1 DAY)UNK
     Route: 048
     Dates: start: 20140614
  12. CLAVULANIC ACID [Concomitant]
     Active Substance: CLAVULANIC ACID
  13. SOLIRIS [Concomitant]
     Active Substance: ECULIZUMAB
     Dosage: 300 MG, UNK
     Route: 042
     Dates: start: 20140613, end: 20140613
  14. ZYMA-D2 [Concomitant]
     Dosage: 80000 IU, DRINKABLE SOLUTIONUNK

REACTIONS (1)
  - Agranulocytosis [Recovered/Resolved]

NARRATIVE: CASE EVENT DATE: 20140615
